FAERS Safety Report 4988083-1 (Version None)
Quarter: 2006Q2

REPORT INFORMATION
  Report Type: 
  Country: None (occurrence: None)
  Receive Date: 20060425
  Receipt Date: 20060410
  Transmission Date: 20061013
  Serious: Yes (Hospitalization)
  Sender: FDA-Public Use
  Company Number: 200611484GDS

PATIENT
  Age: 77 Year
  Sex: Female

DRUGS (8)
  1. ASPIRIN [Suspect]
     Indication: ATRIAL FIBRILLATION
     Dosage: 100 MG, QD, ORAL
     Route: 048
     Dates: end: 20060317
  2. ASPIRIN [Suspect]
     Indication: ATRIAL FLUTTER
     Dosage: 100 MG, QD, ORAL
     Route: 048
     Dates: end: 20060317
  3. DEFALGAN (PARACETAMOL) [Suspect]
     Indication: PERIARTHRITIS
     Dosage: 4 G, QD, ORAL
     Route: 048
     Dates: end: 20060317
  4. LISINOPRIL AND HYDROCHLOROTHIAZIDE [Suspect]
     Indication: ESSENTIAL HYPERTENSION
     Dosage: QD, ORAL
     Route: 048
     Dates: start: 20040101, end: 20060316
  5. NOVALGIN (METAMIZOLE SODIUM) [Suspect]
     Indication: CONTUSION
     Dosage: 4 G, QD, ORAL
     Route: 048
     Dates: start: 20040101, end: 20060316
  6. AMIODAR [Concomitant]
  7. DILATREND [Concomitant]
  8. PRIMACTONE [Concomitant]

REACTIONS (6)
  - ANGIONEUROTIC OEDEMA [None]
  - CHEST INJURY [None]
  - CONTUSION [None]
  - PERIARTHRITIS [None]
  - PLEURAL EFFUSION [None]
  - RIB FRACTURE [None]
